FAERS Safety Report 20350126 (Version 11)
Quarter: 2022Q4

REPORT INFORMATION
  Report Type: Report from Study
  Country: CO (occurrence: CO)
  Receive Date: 20220119
  Receipt Date: 20221115
  Transmission Date: 20230113
  Serious: Yes (Hospitalization, Other)
  Sender: FDA-Public Use
  Company Number: CO-NOVARTISPH-NVSC2021CO260575

PATIENT
  Sex: Female

DRUGS (4)
  1. KISQALI [Suspect]
     Active Substance: RIBOCICLIB
     Indication: Hormone receptor positive HER2 negative breast cancer
     Dosage: 200 MG, Q12H (STARTED 8 DAYS AGO)
     Route: 048
  2. KISQALI [Suspect]
     Active Substance: RIBOCICLIB
     Dosage: 200 MG, QD
     Route: 065
  3. KISQALI [Suspect]
     Active Substance: RIBOCICLIB
     Dosage: 400 MG, QD
     Route: 048
  4. KISQALI [Suspect]
     Active Substance: RIBOCICLIB
     Dosage: UNK
     Route: 048

REACTIONS (19)
  - Sitting disability [Unknown]
  - Urinary tract infection [Unknown]
  - Bacterial infection [Unknown]
  - Anaemia [Unknown]
  - Drug ineffective [Not Recovered/Not Resolved]
  - Delirium [Unknown]
  - Feeling abnormal [Unknown]
  - Amnesia [Unknown]
  - Chest pain [Recovered/Resolved]
  - Malaise [Unknown]
  - Blood urine present [Unknown]
  - Axillary pain [Unknown]
  - Breast pain [Unknown]
  - Arthralgia [Unknown]
  - Pruritus [Unknown]
  - Nausea [Unknown]
  - Vomiting [Unknown]
  - Incorrect dose administered [Unknown]
  - Inappropriate schedule of product administration [Unknown]
